FAERS Safety Report 8035834-8 (Version None)
Quarter: 2012Q1

REPORT INFORMATION
  Report Type: 
  Country: None (occurrence: None)
  Receive Date: 20120111
  Receipt Date: 20120111
  Transmission Date: 20120608
  Serious: Yes (Other)
  Sender: FDA-Public Use
  Company Number: None

PATIENT
  Age: 35 Year
  Sex: Female
  Weight: 49.895 kg

DRUGS (1)
  1. NUVARING [Suspect]
     Indication: MIGRAINE
     Dates: start: 20111225, end: 20120108

REACTIONS (3)
  - MOOD SWINGS [None]
  - AFFECT LABILITY [None]
  - FALL [None]
